FAERS Safety Report 11173885 (Version 1)
Quarter: 2015Q2

REPORT INFORMATION
  Report Type: Spontaneous
  Country: US (occurrence: None)
  Receive Date: 20150608
  Receipt Date: 20150608
  Transmission Date: 20150821
  Serious: No
  Sender: FDA-Public Use
  Company Number: None

PATIENT
  Age: 59 Year
  Sex: Female

DRUGS (1)
  1. HUMIRA [Suspect]
     Active Substance: ADALIMUMAB
     Indication: PSORIASIS
     Route: 058
     Dates: start: 20130717

REACTIONS (6)
  - Malaise [None]
  - Blood magnesium decreased [None]
  - Vitamin D decreased [None]
  - Heart rate decreased [None]
  - Blood iron decreased [None]
  - Blood potassium increased [None]

NARRATIVE: CASE EVENT DATE: 20150509
